FAERS Safety Report 15489266 (Version 1)
Quarter: 2018Q4

REPORT INFORMATION
  Report Type: Spontaneous
  Country: FR (occurrence: FR)
  Receive Date: 20181011
  Receipt Date: 20181011
  Transmission Date: 20190205
  Serious: Yes (Hospitalization)
  Sender: FDA-Public Use
  Company Number: FR-ELI_LILLY_AND_COMPANY-FR201810004637

PATIENT
  Age: 84 Year
  Sex: Male
  Weight: 75 kg

DRUGS (1)
  1. ERBITUX [Suspect]
     Active Substance: CETUXIMAB
     Indication: SQUAMOUS CELL CARCINOMA
     Dosage: 954 MG, UNKNOWN
     Route: 042
     Dates: start: 20180529, end: 20180807

REACTIONS (4)
  - Rash maculovesicular [Recovering/Resolving]
  - Conjunctivitis [Unknown]
  - Rash generalised [Recovering/Resolving]
  - Eyelid rash [Recovering/Resolving]

NARRATIVE: CASE EVENT DATE: 20180612
